FAERS Safety Report 25631533 (Version 1)
Quarter: 2025Q3

REPORT INFORMATION
  Report Type: Spontaneous
  Country: US (occurrence: US)
  Receive Date: 20250801
  Receipt Date: 20250801
  Transmission Date: 20251020
  Serious: No
  Sender: AMGEN
  Company Number: US-AMGEN-USASP2025151964

PATIENT
  Sex: Male

DRUGS (3)
  1. UPLIZNA [Suspect]
     Active Substance: INEBILIZUMAB-CDON
     Indication: Immunoglobulin G4 related disease
     Route: 065
  2. UPLIZNA [Suspect]
     Active Substance: INEBILIZUMAB-CDON
     Route: 065
     Dates: start: 20250604
  3. UPLIZNA [Suspect]
     Active Substance: INEBILIZUMAB-CDON
     Route: 065
     Dates: start: 20250618

REACTIONS (4)
  - Urine analysis abnormal [Recovered/Resolved]
  - Diarrhoea [Recovered/Resolved]
  - Weight decreased [Recovered/Resolved]
  - Headache [Not Recovered/Not Resolved]

NARRATIVE: CASE EVENT DATE: 20250101
